FAERS Safety Report 18474877 (Version 2)
Quarter: 2020Q4

REPORT INFORMATION
  Report Type: Spontaneous
  Country: JP (occurrence: JP)
  Receive Date: 20201106
  Receipt Date: 20201217
  Transmission Date: 20210114
  Serious: Yes (Death)
  Sender: FDA-Public Use
  Company Number: JP-JNJFOC-20201109406

PATIENT
  Age: 80 Year
  Sex: Female

DRUGS (7)
  1. UPTRAVI [Suspect]
     Active Substance: SELEXIPAG
     Route: 048
     Dates: start: 20200407, end: 2020
  2. OLOPATADINE HYDROCHLORIDE. [Concomitant]
     Active Substance: OLOPATADINE HYDROCHLORIDE
  3. AZOSEMIDE [Concomitant]
     Active Substance: AZOSEMIDE
  4. SPIRONOLACTONE. [Concomitant]
     Active Substance: SPIRONOLACTONE
  5. TOCOPHEROL ACETATE [TOCOPHERYL ACETATE] [Concomitant]
  6. UPTRAVI [Suspect]
     Active Substance: SELEXIPAG
     Indication: PULMONARY ARTERIAL HYPERTENSION
     Route: 048
  7. L-CARBOCISTEINE [Concomitant]
     Active Substance: CARBOCYSTEINE

REACTIONS (1)
  - Pulmonary arterial hypertension [Fatal]
